FAERS Safety Report 4523840-7 (Version None)
Quarter: 2004Q4

REPORT INFORMATION
  Report Type: 
  Country: None (occurrence: None)
  Receive Date: 20041029
  Receipt Date: 20040923
  Transmission Date: 20050328
  Serious: No
  Sender: FDA-Public Use
  Company Number: 200417287US

PATIENT
  Age: 14 Year
  Sex: Female
  Weight: 59 kg

DRUGS (6)
  1. KETEK [Suspect]
     Indication: LYME DISEASE
     Dosage: 800 MG QD
     Dates: start: 20040811
  2. KETEK [Suspect]
     Indication: NEUROBORRELIOSIS
     Dosage: 800 MG QD
     Dates: start: 20040811
  3. DIFLUCAN [Concomitant]
  4. LACTOBACILLUS ACIDOPHILUS (ACIDOPHILUS) [Concomitant]
  5. VITAMINS NOS (VITAMINS NOS) [Concomitant]
  6. OIL OF OREGANO [Concomitant]

REACTIONS (4)
  - COUGH [None]
  - MYDRIASIS [None]
  - NASAL CONGESTION [None]
  - RHINORRHOEA [None]
